FAERS Safety Report 4572429-2 (Version None)
Quarter: 2005Q1

REPORT INFORMATION
  Report Type: 
  Country: None (occurrence: None)
  Receive Date: 20050207
  Receipt Date: 20050202
  Transmission Date: 20050727
  Serious: Yes (Hospitalization)
  Sender: FDA-Public Use
  Company Number: FR-GLAXOSMITHKLINE-B0369687A

PATIENT
  Age: 43 Year
  Sex: Female
  Weight: 53 kg

DRUGS (1)
  1. NARAMIG [Suspect]
     Indication: MIGRAINE
     Route: 048

REACTIONS (5)
  - BLOOD CREATININE INCREASED [None]
  - CREATININE RENAL CLEARANCE DECREASED [None]
  - GLOMERULAR VASCULAR DISORDER [None]
  - NEPHRITIS INTERSTITIAL [None]
  - RENAL FAILURE ACUTE [None]
